FAERS Safety Report 6993648-1 (Version None)
Quarter: 2010Q3

REPORT INFORMATION
  Report Type: 
  Country: None (occurrence: None)
  Receive Date: 20100917
  Receipt Date: 20091217
  Transmission Date: 20110219
  Serious: Yes (Hospitalization, Other)
  Sender: FDA-Public Use
  Company Number: US-ASTRAZENECA-2006UW24430

PATIENT
  Age: 16864 Day
  Sex: Female
  Weight: 120.2 kg

DRUGS (12)
  1. SEROQUEL [Suspect]
     Indication: BIPOLAR DISORDER
     Route: 048
     Dates: start: 19990101
  2. SEROQUEL [Suspect]
     Indication: DEPRESSION
     Route: 048
     Dates: start: 19990101
  3. SEROQUEL [Suspect]
     Dosage: 25-100 MG
     Route: 048
     Dates: start: 20010530
  4. SEROQUEL [Suspect]
     Dosage: 25-100 MG
     Route: 048
     Dates: start: 20010530
  5. HALDOL [Concomitant]
     Dates: start: 19800101
  6. ZYPREXA [Concomitant]
     Dosage: 5 MG QAM AND 10 MG QHS
     Dates: start: 20001202
  7. LORAZEPAM [Concomitant]
     Dates: start: 20001202
  8. MAXZIDE [Concomitant]
     Dosage: 35.5/25 MG
     Dates: start: 20001202
  9. DEPAKOTE [Concomitant]
     Dates: start: 20001202
  10. CARBATROL [Concomitant]
     Dates: start: 20001202
  11. TEGRETOL-XR [Concomitant]
     Dates: start: 20001202
  12. PREMARIN [Concomitant]
     Dates: start: 20001202

REACTIONS (5)
  - DIABETIC COMA [None]
  - DIABETIC KETOACIDOSIS [None]
  - PANCREATITIS ACUTE [None]
  - TYPE 1 DIABETES MELLITUS [None]
  - TYPE 2 DIABETES MELLITUS [None]
